FAERS Safety Report 18596647 (Version 1)
Quarter: 2020Q4

REPORT INFORMATION
  Report Type: Spontaneous
  Country: US (occurrence: US)
  Receive Date: 20201209
  Receipt Date: 20201209
  Transmission Date: 20210114
  Serious: No
  Sender: FDA-Public Use
  Company Number: US-GLAXOSMITHKLINE-US2020239529

PATIENT
  Age: 56 Year
  Sex: Female

DRUGS (2)
  1. FLONASE ALLERGY RELIEF [Suspect]
     Active Substance: FLUTICASONE PROPIONATE
     Indication: AGEUSIA
     Dosage: UNK
     Dates: start: 20201201, end: 20201201
  2. FLONASE ALLERGY RELIEF [Suspect]
     Active Substance: FLUTICASONE PROPIONATE
     Indication: ANOSMIA

REACTIONS (8)
  - Product use in unapproved indication [Unknown]
  - Anxiety [Unknown]
  - Feeling jittery [Unknown]
  - Feeling abnormal [Unknown]
  - Intentional product misuse [Unknown]
  - Tremor [Unknown]
  - Headache [Unknown]
  - Off label use [Unknown]

NARRATIVE: CASE EVENT DATE: 20201201
